FAERS Safety Report 8616784-2 (Version None)
Quarter: 2012Q3

REPORT INFORMATION
  Report Type: 
  Country: None (occurrence: None)
  Receive Date: 20120823
  Receipt Date: 20120807
  Transmission Date: 20120928
  Serious: No
  Sender: FDA-Public Use
  Company Number: US-009507513-1208USA003356

PATIENT

DRUGS (3)
  1. VICTRELIS [Suspect]
     Indication: HEPATITIS C
     Dosage: 800 MG, Q8H
     Route: 048
  2. PEGASYS [Suspect]
  3. REBETOL [Suspect]
     Route: 048

REACTIONS (3)
  - VISUAL IMPAIRMENT [None]
  - PAIN [None]
  - THIRST [None]
